FAERS Safety Report 14942405 (Version 1)
Quarter: 2018Q2

REPORT INFORMATION
  Report Type: Report from Study
  Country: US (occurrence: US)
  Receive Date: 20180528
  Receipt Date: 20180528
  Transmission Date: 20180711
  Serious: Yes (Hospitalization, Other)
  Sender: FDA-Public Use
  Company Number: US-BRISTOL-MYERS SQUIBB COMPANY-BMS-2018-047115

PATIENT
  Age: 30 Year
  Sex: Male
  Weight: 62.7 kg

DRUGS (2)
  1. NIVOLUMAB [Suspect]
     Active Substance: NIVOLUMAB
     Indication: EPSTEIN-BARR VIRUS ASSOCIATED LYMPHOMA
     Dosage: 185 MG, Q2WK
     Route: 042
     Dates: start: 20180427
  2. NIVOLUMAB [Suspect]
     Active Substance: NIVOLUMAB
     Indication: PRODUCT USED FOR UNKNOWN INDICATION
     Dosage: 182 MG, Q2WK
     Route: 042
     Dates: start: 20180511

REACTIONS (4)
  - Blood bilirubin increased [Unknown]
  - Hepatic infection [Unknown]
  - Hypotension [Unknown]
  - Metastases to liver [Unknown]
